FAERS Safety Report 16935919 (Version 1)
Quarter: 2019Q4

REPORT INFORMATION
  Report Type: Spontaneous
  Country: FR (occurrence: FR)
  Receive Date: 20191018
  Receipt Date: 20191018
  Transmission Date: 20200122
  Serious: Yes (Other)
  Sender: FDA-Public Use
  Company Number: FR-AVERITAS PHARMA, INC.-2019-18315

PATIENT
  Age: 60 Year
  Sex: Female

DRUGS (1)
  1. QUTENZA [Suspect]
     Active Substance: CAPSAICIN
     Indication: BREAST CANCER
     Dosage: 179 MG, UNK
     Route: 062

REACTIONS (2)
  - Breast injury [Recovered/Resolved]
  - Product use in unapproved indication [Recovered/Resolved]
